FAERS Safety Report 7237976-3 (Version None)
Quarter: 2011Q1

REPORT INFORMATION
  Report Type: 
  Country: None (occurrence: None)
  Receive Date: 20110121
  Receipt Date: 20110118
  Transmission Date: 20110831
  Serious: Yes (Other)
  Sender: FDA-Public Use
  Company Number: GXKR2011DE00614

PATIENT
  Sex: Female

DRUGS (1)
  1. AMLODIPIN HEXAL [Suspect]
     Dosage: UNK
     Route: 048
     Dates: start: 20100801

REACTIONS (2)
  - CONCOMITANT DISEASE PROGRESSION [None]
  - MACULAR OEDEMA [None]
